FAERS Safety Report 9182752 (Version 1)
Quarter: 2013Q1

REPORT INFORMATION
  Report Type: Spontaneous
  Country: US (occurrence: US)
  Receive Date: 20130322
  Receipt Date: 20130322
  Transmission Date: 20140127
  Serious: No
  Sender: FDA-Public Use
  Company Number: US-BRISTOL-MYERS SQUIBB COMPANY-17092180

PATIENT
  Age: 76 Year
  Sex: 0

DRUGS (1)
  1. ERBITUX [Suspect]
     Indication: HEAD AND NECK CANCER

REACTIONS (1)
  - Anaemia [Unknown]
